FAERS Safety Report 14213382 (Version 1)
Quarter: 2017Q4

REPORT INFORMATION
  Report Type: Spontaneous
  Country: US (occurrence: US)
  Receive Date: 20171122
  Receipt Date: 20171122
  Transmission Date: 20180321
  Serious: Yes (Life-Threatening)
  Sender: FDA-Public Use
  Company Number: None

PATIENT
  Age: 63 Year
  Sex: Male

DRUGS (2)
  1. ATORVASTATIN [Concomitant]
     Active Substance: ATORVASTATIN
  2. PEMBROLIZUMAB. [Suspect]
     Active Substance: PEMBROLIZUMAB
     Indication: OESOPHAGEAL CARCINOMA
     Dosage: OTHER FREQUENCY:Q21 DAY(STUDY);?
     Route: 042
     Dates: start: 20170414, end: 20170507

REACTIONS (2)
  - Myocarditis [None]
  - Liver function test increased [None]

NARRATIVE: CASE EVENT DATE: 20170507
